FAERS Safety Report 4578162-5 (Version None)
Quarter: 2005Q1

REPORT INFORMATION
  Report Type: 
  Country: None (occurrence: None)
  Receive Date: 20050203
  Receipt Date: 20050203
  Transmission Date: 20050727
  Serious: Yes (Other)
  Sender: FDA-Public Use
  Company Number: None

PATIENT
  Sex: Female

DRUGS (1)
  1. DESOGEN [Suspect]
     Dosage: 1 TABLET @ DAY - ORAL
     Route: 048
     Dates: start: 20041101, end: 20041201

REACTIONS (2)
  - MENSTRUATION IRREGULAR [None]
  - NAUSEA [None]
